FAERS Safety Report 22538199 (Version 1)
Quarter: 2023Q2

REPORT INFORMATION
  Report Type: Spontaneous
  Country: JP (occurrence: JP)
  Receive Date: 20230608
  Receipt Date: 20230608
  Transmission Date: 20230721
  Serious: Yes (Hospitalization)
  Sender: FDA-Public Use
  Company Number: JP-NBI-BS202300148

PATIENT
  Age: 77 Year
  Sex: Male

DRUGS (3)
  1. OFEV [Suspect]
     Active Substance: NINTEDANIB
     Indication: Idiopathic pulmonary fibrosis
     Route: 048
  2. METHYLPREDNISOLONE [Concomitant]
     Active Substance: METHYLPREDNISOLONE
     Indication: Idiopathic pulmonary fibrosis
     Route: 065
  3. PREDNISOLONE [Concomitant]
     Active Substance: PREDNISOLONE
     Indication: Idiopathic pulmonary fibrosis
     Route: 048

REACTIONS (1)
  - Respiratory failure [Unknown]
